FAERS Safety Report 6967754-1 (Version None)
Quarter: 2010Q3

REPORT INFORMATION
  Report Type: 
  Country: None (occurrence: None)
  Receive Date: 20100907
  Receipt Date: 20100903
  Transmission Date: 20110219
  Serious: Yes (Hospitalization)
  Sender: FDA-Public Use
  Company Number: SE-PFIZER INC-2009280954

PATIENT
  Age: 86 Year
  Sex: Male
  Weight: 73 kg

DRUGS (24)
  1. BLINDED *NO SUBJECT DRUG [Suspect]
     Indication: CARDIAC FAILURE CHRONIC
     Dosage: UNK
     Route: 048
     Dates: start: 20080305, end: 20091008
  2. BLINDED *PLACEBO [Suspect]
     Indication: CARDIAC FAILURE CHRONIC
     Dosage: UNK
     Route: 048
     Dates: start: 20080305, end: 20091008
  3. EPLERENONE [Suspect]
     Indication: CARDIAC FAILURE CHRONIC
     Dosage: UNK
     Route: 048
     Dates: start: 20080305, end: 20091008
  4. BLINDED *NO SUBJECT DRUG [Suspect]
     Dosage: UNK
     Route: 048
     Dates: start: 20090408, end: 20090714
  5. BLINDED *PLACEBO [Suspect]
     Dosage: UNK
     Route: 048
     Dates: start: 20090408, end: 20090714
  6. EPLERENONE [Suspect]
     Dosage: UNK
     Route: 048
     Dates: start: 20090408, end: 20090714
  7. BLINDED *NO SUBJECT DRUG [Suspect]
     Dosage: UNK
     Route: 048
     Dates: start: 20090815, end: 20091008
  8. BLINDED *PLACEBO [Suspect]
     Dosage: UNK
     Route: 048
     Dates: start: 20090815, end: 20091008
  9. EPLERENONE [Suspect]
     Dosage: UNK
     Route: 048
     Dates: start: 20090815, end: 20091008
  10. ENALAPRIL MALEATE [Concomitant]
     Dosage: UNK
     Route: 048
     Dates: start: 20070912, end: 20091008
  11. ENALAPRIL MALEATE [Concomitant]
     Dosage: UNK
     Dates: start: 20091013
  12. XALATAN [Concomitant]
     Dosage: UNK
     Route: 061
     Dates: start: 19880101
  13. AZOPT [Concomitant]
     Dosage: UNK
     Route: 061
     Dates: start: 20050614
  14. KALCIPOS-D [Concomitant]
     Dosage: UNK
     Route: 048
     Dates: start: 20060502
  15. WARFARIN [Concomitant]
     Dosage: UNK
     Route: 048
     Dates: start: 20070912, end: 20091009
  16. CITALOPRAM [Concomitant]
     Dosage: UNK
     Route: 048
     Dates: start: 20080602
  17. BISOPROLOL [Concomitant]
     Dosage: UNK
     Route: 048
     Dates: start: 20080710
  18. BUDESONIDE [Concomitant]
     Dosage: UNK
     Route: 055
     Dates: start: 20090409
  19. FORMOTEROL [Concomitant]
     Dosage: UNK
     Route: 055
     Dates: start: 20090409
  20. TERBUTALINE [Concomitant]
     Dosage: UNK
     Route: 055
     Dates: start: 20090409
  21. FUROSEMIDE [Concomitant]
     Dosage: 40 MG, 1X/DAY
     Route: 048
     Dates: start: 20090409
  22. MIRTAZAPINE [Concomitant]
     Dosage: UNK
     Route: 048
     Dates: start: 20090623
  23. PARACETAMOL [Concomitant]
     Dosage: UNK
     Route: 048
  24. OXYCODONE [Concomitant]
     Dosage: UNK
     Route: 048

REACTIONS (3)
  - CARDIAC FAILURE [None]
  - CONDITION AGGRAVATED [None]
  - RENAL FAILURE [None]
